FAERS Safety Report 6887165-7 (Version None)
Quarter: 2010Q3

REPORT INFORMATION
  Report Type: 
  Country: None (occurrence: None)
  Receive Date: 20100730
  Receipt Date: 20100719
  Transmission Date: 20110219
  Serious: Yes (Other)
  Sender: FDA-Public Use
  Company Number: FR-PFIZER INC-2010089684

PATIENT
  Age: 75 Year
  Sex: Female
  Weight: 56 kg

DRUGS (3)
  1. ALDACTONE [Suspect]
  2. LASIX [Suspect]
  3. RAMIPRIL [Suspect]

REACTIONS (1)
  - WEIGHT DECREASED [None]
